FAERS Safety Report 18820950 (Version 2)
Quarter: 2021Q1

REPORT INFORMATION
  Report Type: Spontaneous
  Country: GB (occurrence: GB)
  Receive Date: 20210202
  Receipt Date: 20210204
  Transmission Date: 20210419
  Serious: Yes (Other)
  Sender: FDA-Public Use
  Company Number: GB-TEVA-2021-GB-1874567

PATIENT
  Age: 42 Year
  Sex: Male

DRUGS (3)
  1. TAMOXIFEN [Suspect]
     Active Substance: TAMOXIFEN
     Indication: PRODUCT USED FOR UNKNOWN INDICATION
     Dosage: 20 MILLIGRAM DAILY;
     Route: 065
  2. MENOTROPIN [Suspect]
     Active Substance: MENOTROPINS
     Indication: AZOOSPERMIA
     Route: 065
  3. CHORIONIC GONADOTROPIN [Suspect]
     Active Substance: CHORIOGONADOTROPIN ALFA
     Indication: AZOOSPERMIA
     Route: 065

REACTIONS (2)
  - Off label use [Unknown]
  - Libido decreased [Unknown]
